FAERS Safety Report 5679948-6 (Version None)
Quarter: 2008Q1

REPORT INFORMATION
  Report Type: 
  Country: None (occurrence: None)
  Receive Date: 20080324
  Receipt Date: 20080310
  Transmission Date: 20080703
  Serious: Yes (Other)
  Sender: FDA-Public Use
  Company Number: GXKR2008GB02508

PATIENT
  Age: 68 Year
  Sex: Male

DRUGS (4)
  1. LISINOPRIL [Suspect]
     Indication: HYPERTENSION
     Dosage: 10 MG, ORAL
     Route: 048
     Dates: start: 20071121, end: 20080227
  2. ATENOLOL [Concomitant]
  3. FELODIPINE [Concomitant]
  4. TAMSULOSIN HCL [Concomitant]

REACTIONS (3)
  - ANXIETY [None]
  - PETECHIAE [None]
  - RASH PAPULAR [None]
